FAERS Safety Report 15154261 (Version 2)
Quarter: 2018Q3

REPORT INFORMATION
  Report Type: Report from Study
  Country: US (occurrence: US)
  Receive Date: 20180717
  Receipt Date: 20180726
  Transmission Date: 20181010
  Serious: Yes (Hospitalization)
  Sender: FDA-Public Use
  Company Number: US-TESARO, INC-US-2018TSO03559

PATIENT
  Sex: Female

DRUGS (1)
  1. ZEJULA [Suspect]
     Active Substance: NIRAPARIB
     Indication: MALIGNANT PERITONEAL NEOPLASM
     Dosage: 300 MG, QD
     Route: 048
     Dates: start: 20180622, end: 20180708

REACTIONS (6)
  - Pain [Recovered/Resolved]
  - Back pain [Recovered/Resolved]
  - Urine amphetamine positive [Recovered/Resolved]
  - Confusional state [Recovered/Resolved]
  - Pelvic pain [Recovered/Resolved]
  - Asthenia [Recovered/Resolved]
